FAERS Safety Report 4491593-7 (Version None)
Quarter: 2004Q4

REPORT INFORMATION
  Report Type: 
  Country: None (occurrence: None)
  Receive Date: 20041029
  Receipt Date: 20040720
  Transmission Date: 20050328
  Serious: Yes (Death, Hospitalization, Other)
  Sender: FDA-Public Use
  Company Number: 2004-00533

PATIENT
  Age: 44 Year
  Sex: Male
  Weight: 98.4 kg

DRUGS (8)
  1. VELCADE [Suspect]
     Indication: MULTIPLE MYELOMA
     Dosage: 1.30 MG/M2 ,IV BOLUS
     Route: 040
     Dates: start: 20030519, end: 20031125
  2. VELCADE [Suspect]
     Indication: MULTIPLE MYELOMA
     Dosage: 1.30 MG/M2 ,IV BOLUS
     Route: 040
     Dates: end: 20031223
  3. KYTRIL [Concomitant]
  4. PROCRIT [Concomitant]
  5. ATENOLOL [Concomitant]
  6. NORVASC [Concomitant]
  7. VALTREX [Concomitant]
  8. COUMADIN [Concomitant]

REACTIONS (11)
  - BLOOD PRESSURE SYSTOLIC INCREASED [None]
  - CARDIO-RESPIRATORY ARREST [None]
  - COAGULOPATHY [None]
  - CRYPTOGENIC ORGANIZING PNEUMONIA [None]
  - GASTRITIS HAEMORRHAGIC [None]
  - MALIGNANT NEOPLASM PROGRESSION [None]
  - MULTIPLE MYELOMA [None]
  - PNEUMOCYSTIS CARINII PNEUMONIA [None]
  - PNEUMONIA [None]
  - RENAL FAILURE [None]
  - RESPIRATORY DISTRESS [None]
